FAERS Safety Report 7708442-3 (Version None)
Quarter: 2011Q3

REPORT INFORMATION
  Report Type: 
  Country: None (occurrence: None)
  Receive Date: 20110825
  Receipt Date: 20110815
  Transmission Date: 20111222
  Serious: Yes (Hospitalization, Other)
  Sender: FDA-Public Use
  Company Number: US-BAYER-2011-002260

PATIENT
  Age: 29 Year
  Sex: Female
  Weight: 108.39 kg

DRUGS (3)
  1. IBUPROFEN [Concomitant]
     Dosage: 800 MG, UNK
     Dates: start: 20061002, end: 20100216
  2. YAZ [Suspect]
     Indication: PREMENSTRUAL SYNDROME
     Dosage: UNK
     Dates: start: 20080609, end: 20090205
  3. DICYCLOMINE [Concomitant]
     Indication: DYSPEPSIA
     Dosage: UNK
     Dates: start: 20050518, end: 20090123

REACTIONS (7)
  - CHOLECYSTITIS CHRONIC [None]
  - PAIN [None]
  - EMOTIONAL DISTRESS [None]
  - ADHESION [None]
  - BILIARY DYSKINESIA [None]
  - MUSCLE SPASMS [None]
  - ANXIETY [None]
